FAERS Safety Report 9115065 (Version 2)
Quarter: 2013Q1

REPORT INFORMATION
  Report Type: Spontaneous
  Country: JP (occurrence: None)
  Receive Date: 20130125
  Receipt Date: 20130208
  Transmission Date: 20140127
  Serious: No
  Sender: FDA-Public Use
  Company Number: SPI201300011

PATIENT
  Age: 75 Year
  Sex: Female

DRUGS (2)
  1. AMITIZA (LUBIPROSTONE) CAPSULE, 24 MCG [Suspect]
     Indication: CONSTIPATION
     Route: 048
     Dates: start: 20130105, end: 20130106
  2. ALOSENN (ACHILLEA MILLEFOLIUM, RUBIA TINCTORUM RROT TINCTURE, SENNA ALEXANDRINA FRUIT, SENNA ALEXANDRINA LEAF TARAXACUM OFFICINALE) [Concomitant]

REACTIONS (4)
  - Cough [None]
  - Hypersensitivity [None]
  - Dyspnoea [None]
  - Respiratory rate decreased [None]
